FAERS Safety Report 5416218-5 (Version None)
Quarter: 2007Q3

REPORT INFORMATION
  Report Type: 
  Country: None (occurrence: None)
  Receive Date: 20070718
  Receipt Date: 20070128
  Transmission Date: 20080115
  Serious: Yes (Other)
  Sender: FDA-Public Use
  Company Number: 2007008692

PATIENT

DRUGS (1)
  1. CELEBREX [Suspect]

REACTIONS (1)
  - DEEP VEIN THROMBOSIS [None]
